FAERS Safety Report 25890218 (Version 2)
Quarter: 2025Q4

REPORT INFORMATION
  Report Type: Spontaneous
  Country: JP (occurrence: JP)
  Receive Date: 20251007
  Receipt Date: 20251105
  Transmission Date: 20260117
  Serious: Yes (Death)
  Sender: INSMED
  Company Number: JP-INSMED, INC.-2025-04260-JP

PATIENT
  Age: 8 Decade
  Sex: Female

DRUGS (1)
  1. ARIKAYCE [Suspect]
     Active Substance: AMIKACIN
     Indication: Mycobacterium avium complex infection
     Dosage: 590 MILLIGRAM, UNK
     Route: 055

REACTIONS (1)
  - Death [Fatal]
